FAERS Safety Report 4886307-2 (Version None)
Quarter: 2006Q1

REPORT INFORMATION
  Report Type: 
  Country: None (occurrence: None)
  Receive Date: 20060118
  Receipt Date: 20060118
  Transmission Date: 20060701
  Serious: Yes (Hospitalization)
  Sender: FDA-Public Use
  Company Number: None

PATIENT
  Age: 35 Year
  Sex: Male
  Weight: 97.5234 kg

DRUGS (1)
  1. LEVAQUIN [Suspect]
     Indication: SINUSITIS
     Dates: start: 20050920, end: 20050930

REACTIONS (9)
  - DYSPNOEA [None]
  - FEELING ABNORMAL [None]
  - GRANULOMA [None]
  - MALAISE [None]
  - NAUSEA [None]
  - ORCHIDECTOMY [None]
  - RASH GENERALISED [None]
  - TESTICULAR MASS [None]
  - TESTICULAR PAIN [None]
